FAERS Safety Report 6975403-1 (Version None)
Quarter: 2010Q3

REPORT INFORMATION
  Report Type: 
  Country: None (occurrence: None)
  Receive Date: 20100910
  Receipt Date: 20090309
  Transmission Date: 20110219
  Serious: No
  Sender: FDA-Public Use
  Company Number: US-WYE-H08526409

PATIENT
  Sex: Female
  Weight: 72.64 kg

DRUGS (2)
  1. PRISTIQ [Suspect]
     Indication: PANIC DISORDER
     Route: 048
     Dates: start: 20090209
  2. CLONAZEPAM [Suspect]
     Indication: PANIC DISORDER
     Dosage: 0.5 MG BID PRN
     Route: 048
     Dates: start: 20090209

REACTIONS (1)
  - CHILLS [None]
